FAERS Safety Report 25488470 (Version 1)
Quarter: 2025Q2

REPORT INFORMATION
  Report Type: Spontaneous
  Country: BE (occurrence: BE)
  Receive Date: 20250627
  Receipt Date: 20250627
  Transmission Date: 20250717
  Serious: Yes (Other)
  Sender: UCB
  Company Number: None

PATIENT
  Age: 13 Year
  Sex: Female
  Weight: 64 kg

DRUGS (6)
  1. KEPPRA [Suspect]
     Active Substance: LEVETIRACETAM
     Indication: Idiopathic generalised epilepsy
     Dates: start: 202409
  2. KEPPRA [Suspect]
     Active Substance: LEVETIRACETAM
     Indication: Juvenile myoclonic epilepsy
  3. LAMICTAL [Suspect]
     Active Substance: LAMOTRIGINE
     Indication: Idiopathic generalised epilepsy
     Dates: start: 202304
  4. LAMICTAL [Suspect]
     Active Substance: LAMOTRIGINE
     Indication: Juvenile myoclonic epilepsy
  5. CLOBAZAM [Concomitant]
     Active Substance: CLOBAZAM
     Indication: Idiopathic generalised epilepsy
     Dosage: 2 DOSAGE FORM, ONCE DAILY (QD)
     Dates: start: 202504
  6. CLOBAZAM [Concomitant]
     Active Substance: CLOBAZAM
     Indication: Juvenile myoclonic epilepsy

REACTIONS (2)
  - Vertigo [Unknown]
  - Pyrexia [Unknown]

NARRATIVE: CASE EVENT DATE: 20240901
